FAERS Safety Report 12105282 (Version 1)
Quarter: 2016Q1

REPORT INFORMATION
  Report Type: Spontaneous
  Country: US (occurrence: US)
  Receive Date: 20160223
  Receipt Date: 20160223
  Transmission Date: 20160526
  Serious: No
  Sender: FDA-Public Use
  Company Number: CHPA2016US002388

PATIENT
  Age: 78 Year
  Sex: Male

DRUGS (1)
  1. VOLTAREN [Suspect]
     Active Substance: DICLOFENAC SODIUM
     Indication: TENDON INJURY
     Dosage: 2 G, ONCE/SINGLE
     Route: 061
     Dates: start: 201511, end: 201511

REACTIONS (4)
  - Dizziness [Recovered/Resolved]
  - Drug administered at inappropriate site [Unknown]
  - Hypoaesthesia [Recovered/Resolved]
  - Product use issue [Unknown]

NARRATIVE: CASE EVENT DATE: 201511
